FAERS Safety Report 21928728 (Version 2)
Quarter: 2023Q1

REPORT INFORMATION
  Report Type: Spontaneous
  Country: JP (occurrence: JP)
  Receive Date: 20230131
  Receipt Date: 20230216
  Transmission Date: 20230418
  Serious: Yes (Hospitalization, Other)
  Sender: FDA-Public Use
  Company Number: JP-CHUGAI-2023002667

PATIENT
  Age: 49 Year

DRUGS (4)
  1. TECENTRIQ [Suspect]
     Active Substance: ATEZOLIZUMAB
     Indication: Non-small cell lung cancer
     Dosage: UNK
     Route: 041
  2. AVASTIN [Suspect]
     Active Substance: BEVACIZUMAB
     Indication: Non-small cell lung cancer
     Dosage: UNK
     Route: 041
  3. CARBOPLATIN [Concomitant]
     Active Substance: CARBOPLATIN
     Indication: Non-small cell lung cancer
     Dosage: UNK
     Route: 041
  4. PACLITAXEL [Concomitant]
     Active Substance: PACLITAXEL
     Indication: Non-small cell lung cancer
     Dosage: UNK
     Route: 041

REACTIONS (6)
  - Melaena [Recovered/Resolved]
  - Skin disorder [Not Recovered/Not Resolved]
  - Pyrexia [Recovered/Resolved]
  - Diarrhoea [Unknown]
  - Stomatitis [Not Recovered/Not Resolved]
  - Diplegia [Unknown]

NARRATIVE: CASE EVENT DATE: 20230127
